FAERS Safety Report 7284272-4 (Version None)
Quarter: 2011Q1

REPORT INFORMATION
  Report Type: 
  Country: None (occurrence: None)
  Receive Date: 20110209
  Receipt Date: 20110202
  Transmission Date: 20110831
  Serious: Yes (Hospitalization)
  Sender: FDA-Public Use
  Company Number: CHPA2011US01691

PATIENT
  Age: 7 Year
  Sex: Male
  Weight: 24.49 kg

DRUGS (4)
  1. TRIAMINIC NIGHT TIME COLD + COUGH [Suspect]
     Indication: PYREXIA
  2. TRIAMINIC NIGHT TIME COLD + COUGH [Suspect]
     Indication: RHINORRHOEA
  3. TRIAMINIC NIGHT TIME COLD + COUGH [Suspect]
     Indication: NASAL CONGESTION
  4. TRIAMINIC NIGHT TIME COLD + COUGH [Suspect]
     Indication: HEADACHE
     Dosage: 2 TSP, BID
     Route: 048
     Dates: start: 20110124, end: 20110124

REACTIONS (7)
  - PYREXIA [None]
  - CONDITION AGGRAVATED [None]
  - OFF LABEL USE [None]
  - LOSS OF CONSCIOUSNESS [None]
  - CONVULSION [None]
  - FAECAL INCONTINENCE [None]
  - FEELING COLD [None]
